FAERS Safety Report 25136862 (Version 3)
Quarter: 2025Q2

REPORT INFORMATION
  Report Type: Spontaneous
  Country: ZA (occurrence: ZA)
  Receive Date: 20250328
  Receipt Date: 20250514
  Transmission Date: 20250717
  Serious: Yes (Life-Threatening, Other)
  Sender: NOVO NORDISK
  Company Number: ZA-NOVOPROD-1396661

PATIENT
  Sex: Female

DRUGS (1)
  1. NOVORAPID [Suspect]
     Active Substance: INSULIN ASPART
     Indication: Type 1 diabetes mellitus

REACTIONS (8)
  - Diabetic ketoacidosis [Unknown]
  - Blood glucose increased [Unknown]
  - Incorrect dose administered by device [Unknown]
  - Device failure [Unknown]
  - Device malfunction [Unknown]
  - Device breakage [Unknown]
  - Wrong technique in product usage process [Unknown]
  - Product storage error [Unknown]
